FAERS Safety Report 21932260 (Version 1)
Quarter: 2023Q1

REPORT INFORMATION
  Report Type: Spontaneous
  Country: US (occurrence: None)
  Receive Date: 20230131
  Receipt Date: 20230131
  Transmission Date: 20230417
  Serious: Yes (Other)
  Sender: FDA-Public Use
  Company Number: None

PATIENT
  Age: 25 Year
  Sex: Female
  Weight: 81 kg

DRUGS (4)
  1. NITROUS OXIDE [Suspect]
     Active Substance: NITROUS OXIDE
     Indication: Dental local anaesthesia
     Dates: start: 20230129, end: 20230129
  2. CYMBALTA [Concomitant]
     Active Substance: DULOXETINE HYDROCHLORIDE
  3. Women^s multivitamin [Concomitant]
  4. herbal tea (Buddha Teas^ Divine Immunity Blend) [Concomitant]

REACTIONS (11)
  - Feeling abnormal [None]
  - Hyperacusis [None]
  - Deafness [None]
  - Unresponsive to stimuli [None]
  - Movement disorder [None]
  - Panic attack [None]
  - Fear [None]
  - Autoscopy [None]
  - Sensory disturbance [None]
  - Tinnitus [None]
  - Dissociative disorder [None]

NARRATIVE: CASE EVENT DATE: 20230129
